FAERS Safety Report 20845333 (Version 1)
Quarter: 2022Q2

REPORT INFORMATION
  Report Type: Spontaneous
  Country: US (occurrence: None)
  Receive Date: 20220518
  Receipt Date: 20220518
  Transmission Date: 20220721
  Serious: Yes (Hospitalization)
  Sender: FDA-Public Use
  Company Number: None

PATIENT
  Age: 68 Year
  Sex: Male
  Weight: 899 kg

DRUGS (1)
  1. CILGAVIMAB\TIXAGEVIMAB [Suspect]
     Active Substance: CILGAVIMAB\TIXAGEVIMAB
     Indication: COVID-19 prophylaxis
     Dosage: FREQUENCY : ONCE IM?
     Route: 030
     Dates: start: 20220425, end: 20220425

REACTIONS (6)
  - Palpitations [None]
  - Syncope [None]
  - Angina pectoris [None]
  - Dizziness [None]
  - Dyspnoea [None]
  - Atrial fibrillation [None]
